FAERS Safety Report 9820052 (Version 1)
Quarter: 2013Q4

REPORT INFORMATION
  Report Type: Spontaneous
  Country: US (occurrence: None)
  Receive Date: 20131223
  Receipt Date: 20131223
  Transmission Date: 20140711
  Serious: No
  Sender: FDA-Public Use
  Company Number: 220965

PATIENT
  Age: 61 Year
  Sex: Female

DRUGS (4)
  1. PICATO [Suspect]
     Indication: ACTINIC KERATOSIS
     Dosage: FOR 3 DAYS, ON NOSE AND CHEEKS
     Dates: start: 20130312, end: 20130314
  2. LOSARTAN (LOSARTAN) [Concomitant]
  3. CARVEDILOL (CARVEDILOL) [Concomitant]
  4. BABY ASA (ACETYLSALICYLIC ACID) [Concomitant]

REACTIONS (5)
  - Application site erythema [None]
  - Application site pain [None]
  - Application site vesicles [None]
  - Application site dryness [None]
  - Drug administered at inappropriate site [None]
